FAERS Safety Report 19951345 (Version 1)
Quarter: 2021Q4

REPORT INFORMATION
  Report Type: Spontaneous
  Country: US (occurrence: US)
  Receive Date: 20211013
  Receipt Date: 20211013
  Transmission Date: 20220304
  Serious: Yes (Death)
  Sender: FDA-Public Use
  Company Number: US-PFIZER INC-202101319549

PATIENT
  Age: 77 Year
  Sex: Female

DRUGS (1)
  1. RAPAMUNE [Suspect]
     Active Substance: SIROLIMUS
     Dosage: 4 MG, 1X/DAY (TAKE 2 TABLETS (4 MG) ONCE DAILY, QUANTITY 60)

REACTIONS (1)
  - Death [Fatal]

NARRATIVE: CASE EVENT DATE: 20210202
